FAERS Safety Report 5373717-2 (Version None)
Quarter: 2007Q2

REPORT INFORMATION
  Report Type: 
  Country: None (occurrence: None)
  Receive Date: 20070628
  Receipt Date: 20070412
  Transmission Date: 20071010
  Serious: Yes (Hospitalization, Other)
  Sender: FDA-Public Use
  Company Number: US-ASTRAZENECA-2005UW15686

PATIENT
  Sex: Female
  Weight: 91.4 kg

DRUGS (131)
  1. SEROQUEL [Suspect]
     Route: 048
     Dates: start: 20000201, end: 20040601
  2. RISPERDAL [Suspect]
     Indication: HALLUCINATION, AUDITORY
     Route: 048
     Dates: start: 20000208, end: 20040601
  3. ZYPREXA [Suspect]
     Dates: start: 20000201, end: 20040601
  4. PROZAC [Concomitant]
     Indication: DEPRESSION
     Dates: start: 20051101
  5. PROZAC [Concomitant]
  6. DAYPRO [Concomitant]
  7. AMITRIPTYLINE HCL [Concomitant]
  8. MONOPRIL [Concomitant]
  9. PEPCID [Concomitant]
  10. TYLENOL [Concomitant]
  11. CHLORTHALIDONE [Concomitant]
     Route: 048
  12. SPIRONOLACTONE [Concomitant]
     Indication: ANGIOEDEMA
     Route: 048
  13. SPIRONOLACTONE [Concomitant]
     Route: 048
  14. ALPHAGAN [Concomitant]
     Indication: GLAUCOMA
     Route: 047
  15. ALPHAGAN [Concomitant]
     Route: 047
  16. PREVACID [Concomitant]
     Indication: GASTROOESOPHAGEAL REFLUX DISEASE
     Route: 048
  17. PREVACID [Concomitant]
  18. ASCORBIC ACID [Concomitant]
     Route: 048
  19. CYCLOBENZAPRINE HCL [Concomitant]
     Route: 048
  20. LEXAPRO [Concomitant]
     Route: 048
  21. VISTARIL [Concomitant]
  22. GLUCOTROL XL [Concomitant]
     Route: 048
  23. GLUCOTROL XL [Concomitant]
     Route: 048
  24. LORAZEPAM [Concomitant]
     Dosage: PRN
     Route: 048
  25. LORAZEPAM [Concomitant]
     Route: 048
  26. EFFEXOR [Concomitant]
     Dosage: 225 MG QAM AND 150 MG HS
  27. EFFEXOR [Concomitant]
     Route: 048
  28. AMBIEN [Concomitant]
     Dosage: 1 1/2
     Route: 048
  29. AMBIEN [Concomitant]
     Route: 048
  30. FLUOCINONIDE [Concomitant]
  31. DETROL LA [Concomitant]
     Route: 048
  32. CLONAZEPAM [Concomitant]
     Route: 048
  33. WELLBUTRIN XL [Concomitant]
     Route: 048
  34. WELLBUTRIN XL [Concomitant]
     Route: 048
  35. WELLBUTRIN XL [Concomitant]
     Route: 048
  36. TRAMADOL HCL [Concomitant]
     Dosage: QID
     Route: 048
  37. ULTRACET [Concomitant]
     Indication: INTERVERTEBRAL DISC DEGENERATION
     Dosage: 37.5/325 MG
  38. CELEBREX [Concomitant]
     Route: 048
  39. ZANAFLEX [Concomitant]
     Indication: INTERVERTEBRAL DISC DEGENERATION
     Route: 048
  40. FUROSEMIDE [Concomitant]
  41. ALLEGRA [Concomitant]
     Dosage: 60-120 MG
     Route: 048
  42. CIPRO [Concomitant]
     Route: 048
  43. DIFLUCAN [Concomitant]
     Route: 048
  44. DIFLUCAN [Concomitant]
     Route: 048
  45. BACTRIM [Concomitant]
     Dosage: 800-1600 MG
     Route: 048
  46. ACIPHEX [Concomitant]
     Dosage: SAMPLES
     Route: 048
  47. CATAFLAM [Concomitant]
     Dosage: BID-TID
     Route: 048
  48. DURAPHEN DM [Concomitant]
     Dosage: 40-20-1200 MG EVERY 12HR.
     Route: 048
  49. ELIDEL [Concomitant]
     Route: 061
  50. GUAIFENESIN [Concomitant]
     Dosage: 30-600 MG
     Route: 048
  51. HYDROXYZINE HCL [Concomitant]
     Route: 048
  52. HYDROXYZINE PAMOATE [Concomitant]
     Dosage: QID
     Route: 048
  53. LAC-HYDRIN [Concomitant]
     Route: 061
  54. MIRALAX [Concomitant]
     Route: 048
  55. MOBIC [Concomitant]
     Route: 048
  56. NAPROXEN [Concomitant]
     Route: 048
  57. NAPROXEN [Concomitant]
     Route: 048
  58. NAPROXEN [Concomitant]
     Route: 048
  59. PERCOCET [Concomitant]
     Indication: PAIN
     Dosage: 10-325 MG TID TO QID
     Route: 048
  60. NYSTATIN [Concomitant]
     Indication: GLOSSITIS
     Route: 048
  61. PHENERGAN HCL [Concomitant]
     Indication: NAUSEA
     Dosage: EVERY 6-8 HOURS
     Route: 048
  62. PHENERGAN HCL [Concomitant]
     Indication: VOMITING
     Dosage: EVERY 6-8 HOURS
     Route: 048
  63. PYRIDIUM [Concomitant]
     Route: 048
  64. TIZANIDINE HCL [Concomitant]
     Dosage: 1-2 TABS
     Route: 048
  65. TIZANIDINE HCL [Concomitant]
     Dosage: 2 TABS
     Route: 048
  66. ZITHROMAX [Concomitant]
     Route: 048
  67. CELEXA [Concomitant]
     Route: 048
  68. CELEXA [Concomitant]
     Route: 048
  69. CUTIVATE [Concomitant]
     Dosage: SAMPLES
     Dates: start: 20030920
  70. IBUPROFEN [Concomitant]
  71. K-DUR 10 [Concomitant]
     Route: 048
  72. LIDEX [Concomitant]
  73. METAMUCIL PLUS CALCIUM [Concomitant]
     Indication: CONSTIPATION
  74. METAMUCIL PLUS CALCIUM [Concomitant]
     Dosage: 2 CAP IN THE AM AND 2 CAP IN PM
     Route: 048
  75. SINGULAIR [Concomitant]
     Route: 048
  76. TRIAMTERENE [Concomitant]
     Dosage: 75-50 MG
  77. ZANTAC [Concomitant]
     Route: 048
  78. ZANTAC [Concomitant]
     Route: 048
  79. INFLUENZA [Concomitant]
     Dates: start: 20041212
  80. KLONOPIN [Concomitant]
  81. BUSPAR [Concomitant]
  82. BUSPIRONE HCL [Concomitant]
     Route: 048
  83. GEODON [Concomitant]
     Indication: DISSOCIATIVE DISORDER
     Route: 048
  84. HALOPERIDOL [Concomitant]
     Dosage: 1/2 TAB OF 0.5 MG
     Route: 048
  85. TYLENOL EXTRA STRENGTH [Concomitant]
     Indication: INSOMNIA
     Dosage: 500-25 MG
     Route: 048
  86. DIOVAN [Concomitant]
     Route: 048
  87. LIDEX [Concomitant]
     Route: 061
  88. ATARAX [Concomitant]
  89. OXYCODONE HCL AND ACETAMINOPHEN [Concomitant]
     Dosage: 5/325 MG
     Route: 048
  90. ZELNORM [Concomitant]
  91. SENNA PLUS [Concomitant]
  92. POTASSIUM ACETATE [Concomitant]
     Route: 048
  93. TOPAMAX [Concomitant]
     Route: 048
  94. DICLOFENAC [Concomitant]
     Route: 048
  95. PANOKASE [Concomitant]
  96. MEPERIDINE HCL [Concomitant]
  97. BUPROPION HYDROCHLORIDE [Concomitant]
  98. GEMFIBROZIL [Concomitant]
  99. LUNESTA [Concomitant]
     Route: 048
  100. LUNESTA [Concomitant]
     Route: 048
  101. SONATA [Concomitant]
  102. NORTRIPTYLINE HCL [Concomitant]
  103. PLAVIX [Concomitant]
     Route: 048
  104. NEURONTIN [Concomitant]
     Route: 048
  105. MIRALAX [Concomitant]
  106. HYDROXYZINE PAM [Concomitant]
     Route: 048
  107. SULFAMETHOXAZOLE + TRIMETHOPRIM [Concomitant]
  108. CELEBREX [Concomitant]
  109. ABILIFY [Concomitant]
     Route: 048
  110. ULTRACET [Concomitant]
  111. TIZANIDINE HCL [Concomitant]
  112. DETROL LA [Concomitant]
     Route: 048
  113. THIORIDAZINE HCL [Concomitant]
     Route: 048
  114. SF 5000 PLUS CREAM [Concomitant]
  115. GARPENTIN [Concomitant]
  116. KEPPRA [Concomitant]
  117. LYRICA [Concomitant]
  118. LEVAQUIN [Concomitant]
     Route: 048
     Dates: start: 20011027
  119. GLUCOPHAGE [Concomitant]
  120. TRAZODONE HCL [Concomitant]
     Dates: start: 19970221
  121. CARDURA [Concomitant]
     Dates: start: 19970221
  122. VIOXX [Concomitant]
     Dates: end: 20030101
  123. TEGRETOL [Concomitant]
     Dates: end: 20030101
  124. LASIX [Concomitant]
     Dates: end: 20030101
  125. SINGULAIR [Concomitant]
     Dates: start: 20000407
  126. MAXZIDE [Concomitant]
     Dosage: ONE PO DAILY
  127. DESYREL [Concomitant]
  128. DESYREL [Concomitant]
  129. NICOTINE [Concomitant]
  130. COMBIVENT [Concomitant]
     Dosage: 2 PUFFS
     Route: 055
  131. POTASSIUM ACETATE [Concomitant]
     Dates: start: 20050215

REACTIONS (12)
  - ABDOMINAL PAIN [None]
  - CEREBROVASCULAR ACCIDENT [None]
  - CHEST PAIN [None]
  - DIABETES MELLITUS [None]
  - DIABETIC NEUROPATHY [None]
  - FIBROMYALGIA [None]
  - GASTROINTESTINAL PAIN [None]
  - HYPERTENSION [None]
  - NON-CARDIAC CHEST PAIN [None]
  - PANCREATITIS CHRONIC [None]
  - POLYP COLORECTAL [None]
  - SUICIDAL BEHAVIOUR [None]
